FAERS Safety Report 21590359 (Version 1)
Quarter: 2022Q4

REPORT INFORMATION
  Report Type: Spontaneous
  Country: HR (occurrence: HR)
  Receive Date: 20221114
  Receipt Date: 20221114
  Transmission Date: 20230113
  Serious: Yes (Other)
  Sender: FDA-Public Use
  Company Number: HR-TASMAN PHARMA, INC.-2022TSM00201

PATIENT
  Age: 57 Year
  Sex: Male

DRUGS (4)
  1. CLOZAPINE [Suspect]
     Active Substance: CLOZAPINE
     Indication: Schizophrenia
     Dosage: 300-600 MG DAILY
     Route: 065
  2. CLOZAPINE [Suspect]
     Active Substance: CLOZAPINE
     Dosage: UNKNOWN; REINTRODUCED
     Dates: start: 2010
  3. FLUPHENAZINE [Concomitant]
     Active Substance: FLUPHENAZINE
  4. PROMAZINE [Concomitant]
     Active Substance: PROMAZINE

REACTIONS (1)
  - Pancytopenia [Recovered/Resolved]
